FAERS Safety Report 23642698 (Version 1)
Quarter: 2024Q1

REPORT INFORMATION
  Report Type: Spontaneous
  Country: US (occurrence: None)
  Receive Date: 20240315
  Receipt Date: 20240315
  Transmission Date: 20240410
  Serious: Yes (Hospitalization)
  Sender: FDA-Public Use
  Company Number: None

PATIENT
  Sex: Female

DRUGS (3)
  1. OPSUMIT [Suspect]
     Active Substance: MACITENTAN
     Indication: Pulmonary arterial hypertension
     Dosage: FREQUENCY : DAILY;?
     Route: 048
     Dates: start: 202307
  2. TYVASO DPI MAINT KIT PWD [Concomitant]
  3. ADEMPAS [Concomitant]

REACTIONS (9)
  - Dyspnoea [None]
  - Fatigue [None]
  - Headache [None]
  - Anxiety [None]
  - Depression [None]
  - Oedema peripheral [None]
  - Therapy interrupted [None]
  - COVID-19 [None]
  - Therapy change [None]
